FAERS Safety Report 6235602-3 (Version None)
Quarter: 2009Q2

REPORT INFORMATION
  Report Type: 
  Country: None (occurrence: None)
  Receive Date: 20090618
  Receipt Date: 20090608
  Transmission Date: 20091009
  Serious: Yes (Other)
  Sender: FDA-Public Use
  Company Number: IT-AMGEN-US339949

PATIENT
  Sex: Female

DRUGS (7)
  1. ENBREL [Suspect]
     Indication: PSORIATIC ARTHROPATHY
     Dosage: 50 MG WEEKLY
     Route: 058
     Dates: start: 20080301
  2. METHOTREXATE [Concomitant]
     Dosage: 10 MG
     Route: 065
  3. ADALAT [Concomitant]
     Dosage: 10 MG
     Route: 065
  4. DEFLAN [Concomitant]
     Dosage: 6 MG
     Route: 065
  5. ACETYLSALICYLIC ACID [Concomitant]
     Dosage: 100 MG
     Route: 065
  6. CELEBREX [Concomitant]
     Dosage: 200 MG
     Route: 048
  7. FOLINA [Concomitant]
     Dosage: 5 MG
     Route: 065

REACTIONS (2)
  - ANTINUCLEAR ANTIBODY POSITIVE [None]
  - RAYNAUD'S PHENOMENON [None]
